FAERS Safety Report 25500624 (Version 1)
Quarter: 2025Q3

REPORT INFORMATION
  Report Type: Report from Study
  Country: US (occurrence: US)
  Receive Date: 20250701
  Receipt Date: 20250701
  Transmission Date: 20251021
  Serious: Yes (Other)
  Sender: BAYER HEALTHCARE PHARMACEUTICALS INC.
  Company Number: US-BAYER-2025A086746

PATIENT
  Age: 66 Year
  Sex: Male

DRUGS (12)
  1. NUBEQA [Suspect]
     Active Substance: DAROLUTAMIDE
     Indication: Prostate cancer
     Dosage: 600 MG, BID
     Route: 048
     Dates: start: 202412
  2. ASPIRIN [Concomitant]
     Active Substance: ASPIRIN
  3. ATORVASTATIN [Concomitant]
     Active Substance: ATORVASTATIN
  4. FUROSEMIDE [Concomitant]
     Active Substance: FUROSEMIDE
  5. GABAPENTIN [Concomitant]
     Active Substance: GABAPENTIN
  6. METOPROLOL SUCCINATE [Concomitant]
     Active Substance: METOPROLOL SUCCINATE
  7. OLANZAPINE [Concomitant]
     Active Substance: OLANZAPINE
  8. OXYCODONE [Concomitant]
     Active Substance: OXYCODONE
  9. PREDNISONE [Concomitant]
     Active Substance: PREDNISONE
  10. PROCHLORPERAZINE MALEATE [Concomitant]
     Active Substance: PROCHLORPERAZINE MALEATE
  11. SILDENAFIL [Concomitant]
     Active Substance: SILDENAFIL
  12. VENLAFAXINE [Concomitant]
     Active Substance: VENLAFAXINE HYDROCHLORIDE

REACTIONS (2)
  - Coronary arterial stent insertion [Not Recovered/Not Resolved]
  - Product dose omission issue [Unknown]
